FAERS Safety Report 6227585-7 (Version None)
Quarter: 2009Q2

REPORT INFORMATION
  Report Type: 
  Country: None (occurrence: None)
  Receive Date: 20090612
  Receipt Date: 20090608
  Transmission Date: 20091009
  Serious: Yes (Death, Hospitalization)
  Sender: FDA-Public Use
  Company Number: US-BIOGENIDEC-2009BI006183

PATIENT
  Age: 71 Year
  Sex: Female

DRUGS (1)
  1. AVONEX [Suspect]
     Indication: MULTIPLE SCLEROSIS
     Dates: start: 19970201, end: 20060101

REACTIONS (5)
  - ACUTE MYOCARDIAL INFARCTION [None]
  - DECUBITUS ULCER [None]
  - DIABETES MELLITUS [None]
  - HYPERTENSION [None]
  - URINARY TRACT INFECTION [None]
